FAERS Safety Report 5778880-7 (Version None)
Quarter: 2008Q2

REPORT INFORMATION
  Report Type: 
  Country: None (occurrence: None)
  Receive Date: 20080611
  Receipt Date: 20080303
  Transmission Date: 20081010
  Serious: Yes (Hospitalization)
  Sender: FDA-Public Use
  Company Number: WAES 0803USA00517

PATIENT
  Age: 90 Year
  Sex: Male

DRUGS (1)
  1. COSOPT [Suspect]
     Indication: BLINDNESS
     Dosage: OPHT
     Route: 047

REACTIONS (2)
  - ADVERSE EVENT [None]
  - OFF LABEL USE [None]
